FAERS Safety Report 23256902 (Version 1)
Quarter: 2023Q4

REPORT INFORMATION
  Report Type: Spontaneous
  Country: BR (occurrence: BR)
  Receive Date: 20231204
  Receipt Date: 20231204
  Transmission Date: 20240110
  Serious: Yes (Other)
  Sender: FDA-Public Use
  Company Number: BR-TAKEDA-2023TUS115972

PATIENT
  Age: 49 Year
  Sex: Female

DRUGS (4)
  1. ENTYVIO [Suspect]
     Active Substance: VEDOLIZUMAB
     Indication: Colitis ulcerative
     Dosage: 300 MILLIGRAM
     Route: 042
     Dates: start: 20221108
  2. MESALAMINE [Suspect]
     Active Substance: MESALAMINE
     Indication: Product used for unknown indication
     Dosage: 4.5 GRAM, QD
     Route: 048
  3. MESALAMINE [Suspect]
     Active Substance: MESALAMINE
     Dosage: 1 GRAM, QD
     Route: 065
  4. PREDNISONE [Concomitant]
     Active Substance: PREDNISONE
     Dosage: UNK
     Dates: start: 20230115

REACTIONS (12)
  - Colitis ulcerative [Unknown]
  - Colon dysplasia [Unknown]
  - Inflammatory myofibroblastic tumour [Unknown]
  - Sensation of foreign body [Unknown]
  - Pelvic pain [Unknown]
  - Depression [Unknown]
  - Colorectal adenoma [Unknown]
  - Anxiety [Unknown]
  - Therapy non-responder [Unknown]
  - Haemorrhoids [Unknown]
  - Dyspepsia [Unknown]
  - Arthralgia [Unknown]
